FAERS Safety Report 16162617 (Version 4)
Quarter: 2019Q2

REPORT INFORMATION
  Report Type: Report from Study
  Country: US (occurrence: US)
  Receive Date: 20190405
  Receipt Date: 20190610
  Transmission Date: 20190711
  Serious: Yes (Hospitalization, Other)
  Sender: FDA-Public Use
  Company Number: US-BAYER-2019-060290

PATIENT
  Age: 63 Year
  Sex: Male

DRUGS (4)
  1. ANTI DIABETIC [Concomitant]
     Indication: HYPERGLYCAEMIA
  2. STIVARGA [Suspect]
     Active Substance: REGORAFENIB
     Indication: COLORECTAL CANCER
     Dosage: DAILY DOSE 120 MG
     Route: 048
     Dates: start: 20190329, end: 2019
  3. STIVARGA [Suspect]
     Active Substance: REGORAFENIB
     Indication: COLORECTAL CANCER
     Dosage: DAILY DOSE 80 MG
     Route: 048
     Dates: start: 20190322, end: 20190328
  4. STIVARGA [Suspect]
     Active Substance: REGORAFENIB
     Indication: COLORECTAL CANCER
     Dosage: 160 MG DAILY FOR 21 DAYS OF A 28 DAY CYCLE
     Route: 048
     Dates: start: 20190418, end: 20190507

REACTIONS (9)
  - Dysphonia [None]
  - Constipation [None]
  - Fatigue [None]
  - Off label use [None]
  - Asthenia [Not Recovered/Not Resolved]
  - Hyperglycaemia [None]
  - Asthenia [None]
  - Dysphonia [None]
  - Renal failure [Not Recovered/Not Resolved]

NARRATIVE: CASE EVENT DATE: 201903
